FAERS Safety Report 23961253 (Version 1)
Quarter: 2024Q2

REPORT INFORMATION
  Report Type: Spontaneous
  Country: SA (occurrence: SA)
  Receive Date: 20240611
  Receipt Date: 20240611
  Transmission Date: 20240715
  Serious: Yes (Hospitalization)
  Sender: FDA-Public Use
  Company Number: SA-AMERICAN REGENT INC-2024002144

PATIENT
  Sex: Female

DRUGS (1)
  1. FERINJECT [Suspect]
     Active Substance: FERRIC CARBOXYMALTOSE
     Indication: Iron deficiency anaemia
     Dosage: DILUTED 100 ML NORMAL SALINE (1 GRAM)

REACTIONS (2)
  - Serum ferritin increased [Unknown]
  - Pain [Unknown]
